FAERS Safety Report 16437105 (Version 2)
Quarter: 2019Q2

REPORT INFORMATION
  Report Type: Report from Study
  Country: CR (occurrence: CR)
  Receive Date: 20190615
  Receipt Date: 20190621
  Transmission Date: 20190711
  Serious: Yes (Other)
  Sender: FDA-Public Use
  Company Number: PHHY2019CR001900

PATIENT
  Age: 59 Year
  Sex: Female

DRUGS (2)
  1. DEXAMETHASONE. [Concomitant]
     Active Substance: DEXAMETHASONE
     Indication: PRODUCT USED FOR UNKNOWN INDICATION
     Route: 065
  2. SCAPHO [Suspect]
     Active Substance: SECUKINUMAB
     Indication: PRODUCT USED FOR UNKNOWN INDICATION
     Dosage: 150 MG, UNK
     Route: 065
     Dates: start: 20181201

REACTIONS (20)
  - Blood pressure decreased [Unknown]
  - Feeling hot [Not Recovered/Not Resolved]
  - Hyperhidrosis [Unknown]
  - Dizziness [Unknown]
  - Acne [Unknown]
  - Musculoskeletal chest pain [Unknown]
  - Drug ineffective [Unknown]
  - Drug hypersensitivity [Unknown]
  - Pruritus generalised [Unknown]
  - Headache [Recovered/Resolved]
  - Cardiovascular insufficiency [Unknown]
  - Erythema [Unknown]
  - Abdominal pain [Unknown]
  - Mobility decreased [Unknown]
  - Malaise [Unknown]
  - Skin discolouration [Unknown]
  - Insomnia [Unknown]
  - Bronchitis [Unknown]
  - Rash generalised [Unknown]
  - Skin burning sensation [Unknown]
